FAERS Safety Report 19861244 (Version 1)
Quarter: 2021Q3

REPORT INFORMATION
  Report Type: Report from Study
  Country: MX (occurrence: MX)
  Receive Date: 20210920
  Receipt Date: 20210920
  Transmission Date: 20211014
  Serious: Yes (Other)
  Sender: FDA-Public Use
  Company Number: NVSC2021MX090015

PATIENT
  Age: 42 Year
  Sex: Male
  Weight: 115 kg

DRUGS (10)
  1. ENTRESTO [Suspect]
     Active Substance: SACUBITRIL\VALSARTAN
     Indication: CONGESTIVE CARDIOMYOPATHY
     Dosage: 200 MG, BID, STARTED 6 YEARS AGO
     Route: 048
  2. SPIRONOLACTONE. [Concomitant]
     Active Substance: SPIRONOLACTONE
     Indication: PROPHYLAXIS
     Dosage: 25 MG, QD (AT NOON) STARTED 6 YEARS AGO
     Route: 048
  3. ASPIRIN PROTEC [Concomitant]
     Active Substance: ASPIRIN
     Indication: PROPHYLAXIS
     Dosage: 100 MG, QD (AT NIGHT) STARTED 6 YEARS AGO
     Route: 048
  4. XIGDUO XR [Concomitant]
     Active Substance: DAPAGLIFLOZIN PROPANEDIOL\METFORMIN HYDROCHLORIDE
     Indication: DIABETES MELLITUS
     Dosage: UNK UNK, BID (1 IN THE MORNING AND 0.5 AT NIGHT) STARTED 6 YEARS AGO
     Route: 048
  5. ATORVASTATIN [Concomitant]
     Active Substance: ATORVASTATIN
     Indication: PROPHYLAXIS
     Dosage: 20 MG, QD (AT NIGHT) STARTED 6 YEARS AGO
     Route: 048
  6. LOPRESOR RETARD [Suspect]
     Active Substance: METOPROLOL
     Indication: CARDIAC DISORDER
     Dosage: 95 MG, QD IN THE MORNING (STARTED 6 YEARS AGO)
     Route: 048
  7. PROCORALAN [Concomitant]
     Active Substance: IVABRADINE
     Indication: CARDIAC DISORDER
     Dosage: 5 MG, BID (IN THE MORNING AND IN THE NIGHT) STARTED 6 YEARS AGO
     Route: 048
  8. NORFENON [Concomitant]
     Indication: TACHYCARDIA
     Dosage: 150 MG, QD (AT NOON) STARTED 6 YEARS AGO
     Route: 048
  9. ALLOPURINOL. [Concomitant]
     Active Substance: ALLOPURINOL
     Indication: BLOOD URIC ACID INCREASED
     Dosage: 100 MG, QD (AT NOON) STARTED 6 YEARS AGO
     Route: 048
  10. PANTOPRAZOLE [Concomitant]
     Active Substance: PANTOPRAZOLE
     Indication: PROPHYLAXIS
     Dosage: 40 MG, QD (AT NIGHT) STARTED 6 YEARS AGO
     Route: 048

REACTIONS (3)
  - Limb injury [Recovered/Resolved]
  - Product use in unapproved indication [Unknown]
  - Diabetic foot [Recovered/Resolved]

NARRATIVE: CASE EVENT DATE: 202012
